FAERS Safety Report 20770238 (Version 1)
Quarter: 2022Q2

REPORT INFORMATION
  Report Type: Spontaneous
  Country: CN (occurrence: CN)
  Receive Date: 20220429
  Receipt Date: 20220429
  Transmission Date: 20220721
  Serious: Yes (Hospitalization)
  Sender: FDA-Public Use
  Company Number: CN-PFIZER INC-202200611372

PATIENT
  Age: 4 Year
  Sex: Male
  Weight: 18.5 kg

DRUGS (8)
  1. CYTARABINE [Suspect]
     Active Substance: CYTARABINE
     Indication: Chemotherapy
     Dosage: 1.42 G, 2X/DAY
     Route: 042
     Dates: start: 20220403, end: 20220403
  2. METHOTREXATE [Suspect]
     Active Substance: METHOTREXATE
     Indication: Chemotherapy
     Dosage: 3.56 MG, 1X/DAY
     Route: 042
     Dates: start: 20220330, end: 20220330
  3. VINDESINE SULFATE [Suspect]
     Active Substance: VINDESINE SULFATE
     Indication: Chemotherapy
     Dosage: 2.14 MG, 1X/DAY
     Route: 042
     Dates: start: 20220330, end: 20220330
  4. CYCLOPHOSPHAMIDE [Suspect]
     Active Substance: CYCLOPHOSPHAMIDE
     Indication: Chemotherapy
     Dosage: 0.142 G, 2X/DAY
     Route: 041
     Dates: start: 20220331, end: 20220402
  5. DEXAMETHASONE ACETATE [Suspect]
     Active Substance: DEXAMETHASONE ACETATE
     Indication: Chemotherapy
     Dosage: 4.75 G, 3X/DAY
     Route: 048
     Dates: start: 20220330, end: 20220403
  6. PEGASPARGASE [Suspect]
     Active Substance: PEGASPARGASE
     Indication: Chemotherapy
     Dosage: 1781 U, 1X/DAY
     Route: 030
     Dates: start: 20220404, end: 20220404
  7. DEXTROSE [Concomitant]
     Active Substance: DEXTROSE
     Indication: Vehicle solution use
     Dosage: 250 ML, 1X/DAY
     Route: 041
     Dates: start: 20220403, end: 20220403
  8. SODIUM CHLORIDE [Concomitant]
     Active Substance: SODIUM CHLORIDE
     Indication: Vehicle solution use
     Dosage: 500 ML, 1X/DAY
     Route: 041
     Dates: start: 20220330, end: 20220402

REACTIONS (6)
  - Neutropenia [Unknown]
  - Pyrexia [Unknown]
  - White blood cell count decreased [Unknown]
  - Lymphocyte count decreased [Unknown]
  - Monocyte count decreased [Unknown]
  - Anaemia [Unknown]

NARRATIVE: CASE EVENT DATE: 20220407
